FAERS Safety Report 4553749-4 (Version None)
Quarter: 2004Q4

REPORT INFORMATION
  Report Type: 
  Country: None (occurrence: None)
  Receive Date: 20041227
  Receipt Date: 20041022
  Transmission Date: 20050328
  Serious: No
  Sender: FDA-Public Use
  Company Number: 04P-163-0278355-00

PATIENT
  Age: 49 Year
  Sex: Female
  Weight: 79.3795 kg

DRUGS (8)
  1. HUMIRA [Suspect]
     Indication: RHEUMATOID ARTHRITIS
     Dosage: 40 MG, 1 IN 2 D, SUBCUTANEOUS
     Route: 058
     Dates: start: 20041008
  2. LEFLUNOMIDE [Concomitant]
  3. CELECOXIB [Concomitant]
  4. PREDNISONE [Concomitant]
  5. CYCLOBENZAPRINE [Concomitant]
  6. CALCIUM CARBONATE [Concomitant]
  7. CENTRUM [Concomitant]
  8. FERROUS SULFATE TAB [Concomitant]

REACTIONS (2)
  - INJECTION SITE RASH [None]
  - URTICARIA [None]
